FAERS Safety Report 8369719-4 (Version None)
Quarter: 2012Q1

REPORT INFORMATION
  Report Type: 
  Country: None (occurrence: None)
  Receive Date: 20120323
  Receipt Date: 20110303
  Transmission Date: 20120608
  Serious: Yes (Other)
  Sender: FDA-Public Use
  Company Number: 163-21880-11012348

PATIENT
  Age: 83 Year
  Sex: Female

DRUGS (2)
  1. DEXAMETHASONE [Concomitant]
  2. REVLIMID [Suspect]
     Indication: MULTIPLE MYELOMA
     Dosage: 10 MG, DAILY FOR 21 DAYS, PO
     Route: 048
     Dates: start: 20110101

REACTIONS (4)
  - ANAEMIA [None]
  - PRURITUS [None]
  - DIZZINESS [None]
  - DIARRHOEA [None]
